FAERS Safety Report 4993319-7 (Version None)
Quarter: 2006Q2

REPORT INFORMATION
  Report Type: 
  Country: None (occurrence: None)
  Receive Date: 20060505
  Receipt Date: 20041213
  Transmission Date: 20061013
  Serious: Yes (Death, Hospitalization)
  Sender: FDA-Public Use
  Company Number: 2004SE06916

PATIENT
  Age: 31786 Day
  Sex: Male
  Weight: 75 kg

DRUGS (9)
  1. BLOPRESS [Suspect]
     Indication: HYPERTENSION
     Route: 048
     Dates: start: 20041111, end: 20041115
  2. BLOPRESS [Suspect]
     Route: 048
     Dates: start: 20041116, end: 20041120
  3. DIART [Suspect]
     Indication: PULMONARY CONGESTION
     Route: 048
     Dates: start: 20041111, end: 20041120
  4. HALFDIGOXIN-KY [Suspect]
     Indication: ATRIAL FIBRILLATION
     Route: 048
     Dates: start: 20041109, end: 20041120
  5. WARFARIN SODIUM [Concomitant]
     Indication: ATRIAL FIBRILLATION
     Route: 048
     Dates: end: 20041106
  6. WARFARIN SODIUM [Concomitant]
     Route: 048
     Dates: start: 20041112, end: 20041114
  7. WARFARIN SODIUM [Concomitant]
     Route: 048
     Dates: start: 20040115, end: 20041117
  8. WARFARIN SODIUM [Concomitant]
     Route: 048
     Dates: start: 20041118, end: 20041122
  9. THEO-DUR [Concomitant]
     Indication: ASTHMA
     Route: 048
     Dates: end: 20041122

REACTIONS (7)
  - CYTOMEGALOVIRUS INFECTION [None]
  - PANCYTOPENIA [None]
  - RASH GENERALISED [None]
  - RENAL IMPAIRMENT [None]
  - SEPSIS [None]
  - THERAPY NON-RESPONDER [None]
  - VASCULITIS [None]
